FAERS Safety Report 7150216-9 (Version None)
Quarter: 2010Q4

REPORT INFORMATION
  Report Type: 
  Country: None (occurrence: None)
  Receive Date: 20101207
  Receipt Date: 20101207
  Transmission Date: 20110411
  Serious: Yes (Other)
  Sender: FDA-Public Use
  Company Number: None

PATIENT
  Age: 7 Year
  Sex: Male
  Weight: 22.6799 kg

DRUGS (1)
  1. IMIPRAMINE [Suspect]
     Indication: ENURESIS
     Dates: start: 20080425, end: 20080506

REACTIONS (2)
  - TOURETTE'S DISORDER [None]
  - TREMOR [None]
